FAERS Safety Report 16442127 (Version 1)
Quarter: 2019Q2

REPORT INFORMATION
  Report Type: Report from Study
  Country: None (occurrence: US)
  Receive Date: 20190617
  Receipt Date: 20190617
  Transmission Date: 20190711
  Serious: No
  Sender: FDA-Public Use
  Company Number: US-US WORLDMEDS, LLC-USW201901-000045

PATIENT
  Age: 71 Year
  Sex: Male
  Weight: 108.86 kg

DRUGS (8)
  1. STALEVO [Concomitant]
     Active Substance: CARBIDOPA\ENTACAPONE\LEVODOPA
  2. APOKYN [Suspect]
     Active Substance: APOMORPHINE HYDROCHLORIDE
     Indication: PARKINSON^S DISEASE
  3. APOKYN [Suspect]
     Active Substance: APOMORPHINE HYDROCHLORIDE
     Route: 058
     Dates: start: 20170831, end: 20190124
  4. NEUPRO [Concomitant]
     Active Substance: ROTIGOTINE
  5. VALSARTAN. [Concomitant]
     Active Substance: VALSARTAN
  6. ROPINIROLE. [Concomitant]
     Active Substance: ROPINIROLE
  7. LYRICA [Concomitant]
     Active Substance: PREGABALIN
  8. METFORMIN [Concomitant]
     Active Substance: METFORMIN HYDROCHLORIDE

REACTIONS (3)
  - Confusional state [Recovering/Resolving]
  - Aggression [Recovering/Resolving]
  - Mental disorder [Recovering/Resolving]

NARRATIVE: CASE EVENT DATE: 20190116
